FAERS Safety Report 9905471 (Version 1)
Quarter: 2014Q1

REPORT INFORMATION
  Report Type: Spontaneous
  Country: US (occurrence: US)
  Receive Date: 20140218
  Receipt Date: 20140218
  Transmission Date: 20141002
  Serious: No
  Sender: FDA-Public Use
  Company Number: US-TEVA-462840USA

PATIENT
  Age: 19 Year
  Sex: Female
  Weight: 51.76 kg

DRUGS (2)
  1. PLAN B ONE-STEP [Suspect]
     Indication: POST COITAL CONTRACEPTION
     Dosage: 1.5 MILLIGRAM DAILY;
     Route: 048
     Dates: start: 20140124, end: 20140124
  2. NEXT CHOICE [Suspect]
     Indication: POST COITAL CONTRACEPTION
     Dates: start: 20140119, end: 20140119

REACTIONS (2)
  - Vaginal discharge [Recovered/Resolved]
  - Menstruation irregular [Recovered/Resolved]
